FAERS Safety Report 8293737-8 (Version None)
Quarter: 2012Q2

REPORT INFORMATION
  Report Type: 
  Country: None (occurrence: None)
  Receive Date: 20120413
  Receipt Date: 20120405
  Transmission Date: 20120825
  Serious: Yes (Hospitalization, Other)
  Sender: FDA-Public Use
  Company Number: ACO_29980_2012

PATIENT
  Age: 62 Year
  Sex: Female
  Weight: 68.5 kg

DRUGS (2)
  1. AMPYRA [Suspect]
     Indication: GAIT DISTURBANCE
     Dosage: 10 MG, BID, ORAL
     Route: 048
     Dates: start: 20100101, end: 20120402
  2. ALENDRONATE SODIUM [Suspect]
     Indication: PRODUCT USED FOR UNKNOWN INDICATION
     Dosage: 70 MG, WEEKLY

REACTIONS (8)
  - BRUGADA SYNDROME [None]
  - CHEST PAIN [None]
  - PALPITATIONS [None]
  - MENTAL STATUS CHANGES [None]
  - ELECTROCARDIOGRAM ABNORMAL [None]
  - VOMITING [None]
  - NAUSEA [None]
  - URINARY TRACT INFECTION [None]
